FAERS Safety Report 24792877 (Version 1)
Quarter: 2024Q4

REPORT INFORMATION
  Report Type: Spontaneous
  Country: FR (occurrence: FR)
  Receive Date: 20241231
  Receipt Date: 20241231
  Transmission Date: 20250115
  Serious: Yes (Hospitalization, Other)
  Sender: AUROBINDO
  Company Number: FR-AFSSAPS-CN2024001189

PATIENT
  Age: 56 Year
  Sex: Male
  Weight: 60 kg

DRUGS (16)
  1. PREDNISONE [Suspect]
     Active Substance: PREDNISONE
     Indication: Prophylaxis against transplant rejection
     Dosage: 50 MILLIGRAM, ONCE A DAY
     Route: 048
     Dates: start: 20231031, end: 20231127
  2. PREDNISONE [Suspect]
     Active Substance: PREDNISONE
     Dosage: 20 MILLIGRAM, ONCE A DAY
     Route: 048
     Dates: start: 20231127, end: 20231221
  3. PREDNISONE [Suspect]
     Active Substance: PREDNISONE
     Dosage: 10 MILLIGRAM, ONCE A DAY
     Route: 048
     Dates: start: 20231221, end: 20240322
  4. PREDNISONE [Suspect]
     Active Substance: PREDNISONE
     Dosage: 9 MILLIGRAM, ONCE A DAY
     Route: 048
     Dates: start: 20240322, end: 20240722
  5. PREDNISONE [Suspect]
     Active Substance: PREDNISONE
     Dosage: 6 MILLIGRAM, ONCE A DAY
     Route: 048
     Dates: start: 20240722
  6. NEORAL [Suspect]
     Active Substance: CYCLOSPORINE
     Indication: Prophylaxis against transplant rejection
     Dosage: 240 MILLIGRAM, ONCE A DAY
     Route: 048
     Dates: start: 20231024
  7. CELLCEPT [Suspect]
     Active Substance: MYCOPHENOLATE MOFETIL
     Indication: Prophylaxis against transplant rejection
     Dosage: 3000 MILLIGRAM, ONCE A DAY
     Route: 048
     Dates: start: 20231031, end: 20231221
  8. CELLCEPT [Suspect]
     Active Substance: MYCOPHENOLATE MOFETIL
     Dosage: 2500 MILLIGRAM, ONCE A DAY
     Route: 048
     Dates: start: 20231221, end: 20240722
  9. CELLCEPT [Suspect]
     Active Substance: MYCOPHENOLATE MOFETIL
     Dosage: 2000 MILLIGRAM, ONCE A DAY
     Route: 048
     Dates: start: 20240722
  10. CERTICAN [Suspect]
     Active Substance: EVEROLIMUS
     Indication: Prophylaxis against transplant rejection
     Dosage: 0.2 MILLIGRAM, ONCE A DAY
     Route: 048
     Dates: start: 20240722, end: 20240823
  11. CERTICAN [Suspect]
     Active Substance: EVEROLIMUS
     Dosage: 0.4 MILLIGRAM, ONCE A DAY
     Route: 048
     Dates: start: 20240823, end: 20240923
  12. CERTICAN [Suspect]
     Active Substance: EVEROLIMUS
     Dosage: 0.9 MILLIGRAM, ONCE A DAY
     Route: 048
     Dates: start: 20240923, end: 20241025
  13. CERTICAN [Suspect]
     Active Substance: EVEROLIMUS
     Dosage: 1 MILLIGRAM, ONCE A DAY
     Route: 048
     Dates: start: 20241025, end: 20241120
  14. VALGANCICLOVIR [Concomitant]
     Active Substance: VALGANCICLOVIR
     Indication: Opportunistic infection prophylaxis
     Dosage: 450 MILLIGRAM, ONCE A DAY
     Route: 048
     Dates: start: 20231020
  15. ATOVAQUONE [Concomitant]
     Active Substance: ATOVAQUONE
     Indication: Opportunistic infection prophylaxis
     Dosage: 1500 MILLIGRAM, ONCE A DAY
     Route: 048
     Dates: start: 20240104
  16. KARDEGIC [Concomitant]
     Active Substance: ASPIRIN DL-LYSINE
     Indication: Heart transplant
     Dosage: 75 MILLIGRAM, ONCE A DAY
     Route: 048
     Dates: start: 20240209

REACTIONS (1)
  - Dermo-hypodermitis [Recovering/Resolving]

NARRATIVE: CASE EVENT DATE: 20241109
